FAERS Safety Report 16530028 (Version 1)
Quarter: 2019Q3

REPORT INFORMATION
  Report Type: Spontaneous
  Country: GB (occurrence: GB)
  Receive Date: 20190704
  Receipt Date: 20190704
  Transmission Date: 20191004
  Serious: Yes (Other)
  Sender: FDA-Public Use
  Company Number: GB-TEVA-2019-GB-1072757

PATIENT
  Age: 86 Year
  Sex: Female

DRUGS (5)
  1. LANSOPRAZOLE. [Concomitant]
     Active Substance: LANSOPRAZOLE
     Route: 065
  2. ALLOPURINOL. [Concomitant]
     Active Substance: ALLOPURINOL
     Route: 065
  3. FEXOFENADINE [Suspect]
     Active Substance: FEXOFENADINE HYDROCHLORIDE
     Dosage: 1 DF
     Dates: end: 20190116
  4. AMLODIPINE [Concomitant]
     Active Substance: AMLODIPINE BESYLATE
     Route: 065
  5. FEXOFENADINE [Suspect]
     Active Substance: FEXOFENADINE HYDROCHLORIDE
     Dosage: 3 DF
     Dates: start: 20190116, end: 20190528

REACTIONS (7)
  - Disorientation [Recovering/Resolving]
  - Nightmare [Recovering/Resolving]
  - Headache [Recovering/Resolving]
  - Nausea [Recovering/Resolving]
  - Dry mouth [Recovering/Resolving]
  - Dizziness [Recovering/Resolving]
  - Fatigue [Recovering/Resolving]
